FAERS Safety Report 6062035-5 (Version None)
Quarter: 2009Q1

REPORT INFORMATION
  Report Type: 
  Country: None (occurrence: None)
  Receive Date: 20090202
  Receipt Date: 20090119
  Transmission Date: 20090719
  Serious: Yes (Hospitalization)
  Sender: FDA-Public Use
  Company Number: GB-GENENTECH-228344

PATIENT
  Sex: Male
  Weight: 72 kg

DRUGS (15)
  1. BEVACIZUMAB [Suspect]
     Indication: COLON CANCER
     Dosage: 352 MG, Q2W
     Route: 042
     Dates: start: 20050804
  2. OXALIPLATIN [Suspect]
     Indication: COLON CANCER
     Dosage: 130 MG, Q2W
     Route: 042
     Dates: start: 20050804
  3. LEUCOVORIN [Suspect]
     Indication: COLON CANCER
     Dosage: 325 MG, UNK
     Route: 042
     Dates: start: 20050804
  4. FLUOROURACIL [Suspect]
     Indication: COLON CANCER
     Dosage: 525 MG, UNK
     Route: 042
     Dates: start: 20050804
  5. FLUOROURACIL [Suspect]
     Dosage: 825 MG, UNK
     Route: 042
  6. DOMPERIDON [Concomitant]
     Indication: DRUG USE FOR UNKNOWN INDICATION
     Dates: start: 20051116
  7. DICLOFENAC [Concomitant]
     Indication: DRUG USE FOR UNKNOWN INDICATION
  8. LOPERAMIDE HCL [Concomitant]
     Indication: DRUG USE FOR UNKNOWN INDICATION
  9. ZOPICLONE [Concomitant]
     Indication: DRUG USE FOR UNKNOWN INDICATION
  10. LANSOPRAZOLE [Concomitant]
     Indication: DRUG USE FOR UNKNOWN INDICATION
  11. SIMVASTATIN [Concomitant]
     Indication: DRUG USE FOR UNKNOWN INDICATION
     Dates: start: 20051115
  12. DEXAMETHASONE [Concomitant]
     Indication: DRUG USE FOR UNKNOWN INDICATION
     Dosage: UNK
     Dates: start: 20050804
  13. SOLPADOL [Concomitant]
     Indication: DRUG USE FOR UNKNOWN INDICATION
     Dosage: UNK
  14. NULYTELY [Concomitant]
     Indication: DRUG USE FOR UNKNOWN INDICATION
     Dosage: UNK
  15. METOCLOPRAMIDE [Suspect]

REACTIONS (1)
  - GASTROENTERITIS [None]
